FAERS Safety Report 16571649 (Version 1)
Quarter: 2019Q3

REPORT INFORMATION
  Report Type: Spontaneous
  Country: US (occurrence: US)
  Receive Date: 20190715
  Receipt Date: 20190715
  Transmission Date: 20191004
  Serious: Yes (Other)
  Sender: FDA-Public Use
  Company Number: US-MYLANLABS-2019M1065884

PATIENT
  Age: 75 Year
  Sex: Male

DRUGS (8)
  1. ACICLOVIR [Suspect]
     Active Substance: ACYCLOVIR
     Indication: OPHTHALMIC HERPES SIMPLEX
     Dosage: 5 TIMES A DAY
     Route: 048
  2. ACICLOVIR [Suspect]
     Active Substance: ACYCLOVIR
     Dosage: 3 TIMES A DAY
     Route: 048
  3. MOXIFLOXACIN. [Suspect]
     Active Substance: MOXIFLOXACIN
     Indication: OPHTHALMIC HERPES SIMPLEX
     Dosage: 3 TIMES A DAY IN THE LEFT EYE
     Route: 061
  4. FAMCICLOVIR. [Suspect]
     Active Substance: FAMCICLOVIR
     Indication: OPHTHALMIC HERPES SIMPLEX
     Dosage: 3 TIMES A DAY
     Route: 048
  5. GANCICLOVIR. [Suspect]
     Active Substance: GANCICLOVIR
     Indication: OPHTHALMIC HERPES SIMPLEX
     Dosage: 5 TIMES A DAY THE LEFT EYE FOR 15 DAYS INITIALLY
     Route: 061
  6. ACICLOVIR [Suspect]
     Active Substance: ACYCLOVIR
     Dosage: 5 TIMES A DAY
     Route: 048
  7. PREDNISOLONE. [Suspect]
     Active Substance: PREDNISOLONE
     Indication: OPHTHALMIC HERPES SIMPLEX
     Dosage: THREE TIMES DAILY IN LEFT EYE
     Route: 065
  8. GANCICLOVIR. [Suspect]
     Active Substance: GANCICLOVIR
     Dosage: 3 TIMES A DAY, INCREASING TO 5 TIMES A DAY WITH EACH NEW RECURRENCE
     Route: 061

REACTIONS (1)
  - Drug ineffective [Unknown]
